FAERS Safety Report 8811626 (Version 1)
Quarter: 2012Q4

REPORT INFORMATION
  Report Type: Spontaneous
  Country: US (occurrence: None)
  Receive Date: 20120926
  Receipt Date: 20120926
  Transmission Date: 20130627
  Serious: Yes (Death)
  Sender: FDA-Public Use
  Company Number: None

PATIENT
  Age: 73 Year
  Sex: Female
  Weight: 53.52 kg

DRUGS (3)
  1. PREMPRO [Suspect]
     Indication: OSTEOPOROSIS
     Dosage: 1/d Route 47
  2. EVISTA [Suspect]
     Dosage: 1/d  route 047
  3. ACTONEL [Suspect]
     Dosage: 1/wk  Route 047

REACTIONS (2)
  - Uterine cancer [None]
  - Drug ineffective [None]
